FAERS Safety Report 9954607 (Version 1)
Quarter: 2014Q1

REPORT INFORMATION
  Report Type: Report from Study
  Country: US (occurrence: US)
  Receive Date: 20140304
  Receipt Date: 20140304
  Transmission Date: 20141002
  Serious: No
  Sender: FDA-Public Use
  Company Number: US-ABBVIE-13P-163-1083207-00

PATIENT
  Age: 31 Year
  Sex: Male

DRUGS (3)
  1. HUMIRA [Suspect]
     Indication: CROHN^S DISEASE
     Dates: start: 20121114
  2. HUMIRA [Suspect]
  3. VITAMINS [Concomitant]
     Indication: ROUTINE HEALTH MAINTENANCE
     Dosage: DAILY
     Route: 048

REACTIONS (2)
  - Bronchitis [Recovered/Resolved]
  - Rash [Recovered/Resolved]
